FAERS Safety Report 7285090-3 (Version None)
Quarter: 2011Q1

REPORT INFORMATION
  Report Type: 
  Country: None (occurrence: None)
  Receive Date: 20110210
  Receipt Date: 20110127
  Transmission Date: 20110831
  Serious: Yes (Hospitalization)
  Sender: FDA-Public Use
  Company Number: PHHY2010JP80262

PATIENT
  Sex: Male
  Weight: 64 kg

DRUGS (15)
  1. INDOMETHACIN SODIUM [Suspect]
     Dosage: UNK
     Route: 048
     Dates: start: 20071207, end: 20071211
  2. INDOMETHACIN SODIUM [Suspect]
     Indication: HEADACHE
     Dosage: UNK
     Route: 048
     Dates: start: 20071116, end: 20071130
  3. CLARITH [Suspect]
     Indication: NASOPHARYNGITIS
     Dosage: UNK
     Route: 048
     Dates: start: 20071206
  4. MUCODYNE [Concomitant]
     Indication: NASOPHARYNGITIS
     Dosage: UNK
     Dates: start: 20071206
  5. LOXONIN [Concomitant]
  6. PLACODE [Concomitant]
     Indication: NASOPHARYNGITIS
     Dosage: UNK
     Dates: start: 20071206
  7. OXYGEN [Concomitant]
  8. VOLTAREN [Concomitant]
     Indication: HEADACHE
     Dosage: UNK
     Route: 048
     Dates: start: 20071110, end: 20071115
  9. CRESTOR [Concomitant]
     Dosage: UNK
     Dates: start: 20070601
  10. MEPTIN [Concomitant]
  11. METHYLPREDNISOLONE [Concomitant]
     Dosage: 100 MG, DAILY
  12. PREDNISOLONE [Concomitant]
     Dosage: 30 MG, DAILY
  13. TEGRETOL [Suspect]
     Dosage: 200 MG, DAILY
     Route: 048
     Dates: start: 20071207, end: 20071211
  14. COLLAGEN [Concomitant]
     Dosage: UNK
     Dates: start: 20070901
  15. TEGRETOL [Suspect]
     Indication: HEADACHE
     Dosage: 200 MG, DAILY
     Route: 048
     Dates: start: 20071110, end: 20071130

REACTIONS (13)
  - HYPERTENSION [None]
  - INFLAMMATION [None]
  - DYSPNOEA [None]
  - DRUG ERUPTION [None]
  - HYPOXIA [None]
  - COUGH [None]
  - EOSINOPHILIA [None]
  - HEPATIC FUNCTION ABNORMAL [None]
  - INTERSTITIAL LUNG DISEASE [None]
  - OROPHARYNGEAL PAIN [None]
  - PYREXIA [None]
  - LYMPHOCYTE MORPHOLOGY ABNORMAL [None]
  - NASOPHARYNGITIS [None]
